FAERS Safety Report 6876719-X (Version None)
Quarter: 2010Q3

REPORT INFORMATION
  Report Type: 
  Country: None (occurrence: None)
  Receive Date: 20100727
  Receipt Date: 20100722
  Transmission Date: 20110219
  Serious: Yes (Other)
  Sender: FDA-Public Use
  Company Number: FR-ROCHE-716893

PATIENT
  Age: 79 Year
  Sex: Female

DRUGS (7)
  1. XELODA [Suspect]
     Indication: NEOPLASM
     Dosage: FORM:COATED TABLET, FIRST CYCLE
     Route: 048
  2. XELODA [Suspect]
     Dosage: SECOND CYCLE
     Route: 048
     Dates: start: 20100601, end: 20100607
  3. PREVISCAN [Suspect]
     Indication: CEREBROVASCULAR ACCIDENT
     Dosage: FORM REPORTED: DIVISIBLE TABLET,
     Route: 048
     Dates: start: 20080101
  4. PREVISCAN [Suspect]
     Dosage: TEMPORARILY STOPPED
     Route: 048
     Dates: end: 20100610
  5. CRESTOR [Suspect]
     Dosage: FORM REPORTED: COATED TABLET
     Route: 048
     Dates: start: 20100607, end: 20100610
  6. KERLONE [Concomitant]
  7. KARDEGIC [Concomitant]

REACTIONS (1)
  - INTERNATIONAL NORMALISED RATIO INCREASED [None]
